FAERS Safety Report 17069953 (Version 1)
Quarter: 2019Q4

REPORT INFORMATION
  Report Type: Spontaneous
  Country: FR (occurrence: FR)
  Receive Date: 20191125
  Receipt Date: 20191125
  Transmission Date: 20200122
  Serious: Yes (Life-Threatening, Hospitalization)
  Sender: FDA-Public Use
  Company Number: FR-ACCORD-161864

PATIENT
  Age: 38 Year
  Sex: Female
  Weight: 72 kg

DRUGS (9)
  1. QUETIAPINE. [Suspect]
     Active Substance: QUETIAPINE
     Route: 048
     Dates: start: 20190306, end: 20190306
  2. NORDAZEPAM [Suspect]
     Active Substance: NORDAZEPAM
     Route: 048
     Dates: start: 20190306, end: 20190306
  3. DIAZEPAM. [Suspect]
     Active Substance: DIAZEPAM
     Route: 048
     Dates: start: 20190306, end: 20190306
  4. TERCIAN [Suspect]
     Active Substance: CYAMEMAZINE
     Dosage: (40 MG/ML, ORAL SOLUTION DROPS)
     Route: 048
     Dates: start: 20190306, end: 20190306
  5. ESCITALOPRAM [Suspect]
     Active Substance: ESCITALOPRAM OXALATE
     Route: 048
     Dates: start: 20190306, end: 20190306
  6. TERALITHE [Suspect]
     Active Substance: LITHIUM CARBONATE
     Dosage: (400 MG, BREAKABLE SUSTAINED RELEASE TABLET)
     Route: 048
     Dates: start: 20190306, end: 20190306
  7. THERALENE [Suspect]
     Active Substance: TRIMEPRAZINE
     Dosage: (4 PERCENT, ORAL SOLUTION DROPS)
     Route: 048
     Dates: start: 20190306, end: 20190306
  8. NORFLOXACIN [Suspect]
     Active Substance: NORFLOXACIN
     Route: 048
     Dates: start: 20190306, end: 20190306
  9. LOPRAZOLAM/LOPRAZOLAM MESILATE [Suspect]
     Active Substance: LOPRAZOLAM MESILATE
     Route: 048
     Dates: start: 20190306, end: 20190306

REACTIONS (7)
  - Coma [Recovered/Resolved]
  - Serotonin syndrome [Recovered/Resolved]
  - Bundle branch block right [Recovered/Resolved]
  - Pyramidal tract syndrome [Recovered/Resolved]
  - Toxicity to various agents [Unknown]
  - Bradypnoea [Recovered/Resolved]
  - Muscle rigidity [Recovered/Resolved]

NARRATIVE: CASE EVENT DATE: 20190306
